FAERS Safety Report 11634753 (Version 3)
Quarter: 2015Q4

REPORT INFORMATION
  Report Type: Spontaneous
  Country: JP (occurrence: JP)
  Receive Date: 20151015
  Receipt Date: 20151223
  Transmission Date: 20160304
  Serious: Yes (Hospitalization)
  Sender: FDA-Public Use
  Company Number: JP-B.I. PHARMACEUTICALS,INC./RIDGEFIELD-2015-BI-55793NB

PATIENT
  Age: 75 Year
  Sex: Male
  Weight: 64 kg

DRUGS (23)
  1. SUREPOST [Suspect]
     Active Substance: REPAGLINIDE
     Indication: DIABETES MELLITUS
     Dosage: 3 MG
     Route: 048
     Dates: start: 20150617, end: 20150713
  2. SUREPOST [Suspect]
     Active Substance: REPAGLINIDE
     Dosage: 3 MG
     Route: 048
     Dates: start: 20150801, end: 20150802
  3. BRONUCK [Concomitant]
     Active Substance: BROMFENAC SODIUM
     Route: 047
     Dates: start: 20150723, end: 20150723
  4. MICAMLO COMBINATION [Suspect]
     Active Substance: AMLODIPINE BESYLATE\TELMISARTAN
     Indication: HYPERTENSION
     Dosage: 2 ANZ
     Route: 048
     Dates: start: 20150617, end: 20150713
  5. MICAMLO COMBINATION [Suspect]
     Active Substance: AMLODIPINE BESYLATE\TELMISARTAN
     Dosage: 1 ANZ
     Route: 048
     Dates: start: 20150802, end: 20150805
  6. SUREPOST [Suspect]
     Active Substance: REPAGLINIDE
     Dosage: 1.5 MG
     Route: 048
     Dates: start: 20150723, end: 20150731
  7. CRESTOR [Concomitant]
     Active Substance: ROSUVASTATIN CALCIUM
     Dosage: 5 MG
     Route: 048
     Dates: start: 20150804, end: 20150805
  8. BRONUCK [Concomitant]
     Active Substance: BROMFENAC SODIUM
     Indication: PRODUCT USED FOR UNKNOWN INDICATION
     Route: 047
     Dates: start: 20150708, end: 20150708
  9. FLIVAS OD [Concomitant]
     Dosage: 75 MG
     Route: 048
     Dates: start: 20150716
  10. URITOS [Concomitant]
     Active Substance: IMIDAFENACIN
     Dosage: 0.2 MG
     Route: 048
     Dates: start: 20150716, end: 20150805
  11. CRESTOR [Concomitant]
     Active Substance: ROSUVASTATIN CALCIUM
     Dosage: 5 MG
     Route: 048
     Dates: start: 20150716, end: 20150722
  12. CALONAL [Concomitant]
     Active Substance: ACETAMINOPHEN
     Indication: PRODUCT USED FOR UNKNOWN INDICATION
     Dosage: 2000 MG
     Route: 048
     Dates: start: 20150706, end: 20150713
  13. SOLDEM 1 [Concomitant]
     Active Substance: DEXTROSE\SODIUM CHLORIDE\SODIUM LACTATE
     Route: 065
     Dates: start: 20150714, end: 20150715
  14. SUREPOST [Suspect]
     Active Substance: REPAGLINIDE
     Dosage: 1.5 MG
     Route: 048
     Dates: start: 20150714, end: 20150715
  15. URITOS [Concomitant]
     Active Substance: IMIDAFENACIN
     Indication: PRODUCT USED FOR UNKNOWN INDICATION
     Dosage: 0.2 MG
     Route: 048
     Dates: start: 20150609, end: 20150713
  16. CRESTOR [Concomitant]
     Active Substance: ROSUVASTATIN CALCIUM
     Dosage: 2.5 MG
     Route: 048
     Dates: start: 20150723, end: 20150803
  17. SUREPOST [Suspect]
     Active Substance: REPAGLINIDE
     Dosage: 3 MG
     Route: 048
     Dates: start: 20150804, end: 20150805
  18. FLIVAS OD [Concomitant]
     Indication: PRODUCT USED FOR UNKNOWN INDICATION
     Dosage: 75 MG
     Route: 048
     Dates: start: 20150609, end: 20150713
  19. SOLDEM 1 [Concomitant]
     Active Substance: DEXTROSE\SODIUM CHLORIDE\SODIUM LACTATE
     Indication: PRODUCT USED FOR UNKNOWN INDICATION
     Route: 065
     Dates: start: 20150713, end: 20150713
  20. CRESTOR [Concomitant]
     Active Substance: ROSUVASTATIN CALCIUM
     Dosage: 2.5 MG
     Route: 065
     Dates: start: 20150714, end: 20150715
  21. SUREPOST [Suspect]
     Active Substance: REPAGLINIDE
     Dosage: 3 MG
     Route: 048
     Dates: start: 20150716, end: 20150722
  22. SUREPOST [Suspect]
     Active Substance: REPAGLINIDE
     Dosage: 1.5 MG
     Route: 048
     Dates: start: 20150803, end: 20150803
  23. CRESTOR [Concomitant]
     Active Substance: ROSUVASTATIN CALCIUM
     Indication: PRODUCT USED FOR UNKNOWN INDICATION
     Dosage: 5 MG
     Route: 065
     Dates: start: 20150617, end: 20150713

REACTIONS (2)
  - Hyperkalaemia [Not Recovered/Not Resolved]
  - Cholecystitis [Recovered/Resolved]

NARRATIVE: CASE EVENT DATE: 20150627
